FAERS Safety Report 9143215 (Version 2)
Quarter: 2013Q1

REPORT INFORMATION
  Report Type: Spontaneous
  Country: DE (occurrence: DE)
  Receive Date: 20130306
  Receipt Date: 20130322
  Transmission Date: 20140127
  Serious: Yes (Other)
  Sender: FDA-Public Use
  Company Number: DE-SANOFI-AVENTIS-2013SA021494

PATIENT
  Age: 77 Year
  Sex: Male

DRUGS (10)
  1. ALFUZOSIN [Suspect]
     Indication: PRODUCT USED FOR UNKNOWN INDICATION
     Route: 065
     Dates: start: 2012, end: 2013
  2. FINASTERIDE [Suspect]
     Indication: PRODUCT USED FOR UNKNOWN INDICATION
     Route: 065
  3. BELOC ZOK [Concomitant]
     Indication: PRODUCT USED FOR UNKNOWN INDICATION
  4. EUTHYROX [Concomitant]
     Indication: PRODUCT USED FOR UNKNOWN INDICATION
  5. SIMVASTATIN [Concomitant]
     Indication: PRODUCT USED FOR UNKNOWN INDICATION
  6. ALLOPURINOL [Concomitant]
  7. PIRETANIDE [Concomitant]
     Indication: PRODUCT USED FOR UNKNOWN INDICATION
  8. GLIMEPIRIDE [Concomitant]
     Indication: PRODUCT USED FOR UNKNOWN INDICATION
  9. ALL OTHER THERAPEUTIC PRODUCTS [Concomitant]
     Indication: PRODUCT USED FOR UNKNOWN INDICATION
  10. INSULIN [Concomitant]
     Indication: DIABETES MELLITUS

REACTIONS (1)
  - Eye haemorrhage [Unknown]
